FAERS Safety Report 17472295 (Version 2)
Quarter: 2020Q1

REPORT INFORMATION
  Report Type: Report from Study
  Country: PK (occurrence: PK)
  Receive Date: 20200228
  Receipt Date: 20200318
  Transmission Date: 20200409
  Serious: Yes (Death)
  Sender: FDA-Public Use
  Company Number: PK-ROCHE-2350165

PATIENT
  Age: 49 Year
  Sex: Female

DRUGS (2)
  1. RISTOVA [Suspect]
     Active Substance: RITUXIMAB
     Route: 042
     Dates: start: 20190603, end: 20191104
  2. RISTOVA [Suspect]
     Active Substance: RITUXIMAB
     Indication: DIFFUSE LARGE B-CELL LYMPHOMA
     Route: 042
     Dates: start: 20190603

REACTIONS (3)
  - Intentional product misuse [Unknown]
  - Off label use [Unknown]
  - Vomiting [Fatal]

NARRATIVE: CASE EVENT DATE: 20191209
